FAERS Safety Report 8103808 (Version 2)
Quarter: 2014Q1

REPORT INFORMATION
  Report Type: Spontaneous
  Country: FR (occurrence: FR)
  Receive Date: 20110824
  Receipt Date: 20140227
  Transmission Date: 20141002
  Serious: Yes (Death, Hospitalization, Other)
  Sender: FDA-Public Use
  Company Number: FR-ELI_LILLY_AND_COMPANY-FR201108004947

PATIENT
  Age: 66 Year
  Sex: Male

DRUGS (2)
  1. PEMETREXED [Suspect]
     Indication: LUNG ADENOCARCINOMA
  2. CARBOPLATIN [Concomitant]

REACTIONS (11)
  - Toxicity to various agents [Fatal]
  - Abdominal pain [Unknown]
  - Diarrhoea [Unknown]
  - General physical health deterioration [Unknown]
  - Vasculitis [Unknown]
  - Pancytopenia [Not Recovered/Not Resolved]
  - Renal failure acute [Unknown]
  - Lactic acidosis [Unknown]
  - Sepsis [Not Recovered/Not Resolved]
  - Multi-organ failure [Not Recovered/Not Resolved]
  - Colitis [Unknown]
